FAERS Safety Report 23548631 (Version 1)
Quarter: 2024Q1

REPORT INFORMATION
  Report Type: Spontaneous
  Country: NL (occurrence: NL)
  Receive Date: 20240221
  Receipt Date: 20240221
  Transmission Date: 20240410
  Serious: Yes (Other)
  Sender: FDA-Public Use
  Company Number: NL-AMGEN-NLDSP2023212782

PATIENT
  Age: 11 Year
  Sex: Male

DRUGS (2)
  1. ADALIMUMAB [Suspect]
     Active Substance: ADALIMUMAB\ISOPROPYL ALCOHOL
     Indication: Crohn^s disease
     Dosage: UNK
     Route: 065
  2. AZATHIOPRINE [Concomitant]
     Active Substance: AZATHIOPRINE
     Indication: Crohn^s disease
     Dosage: 2 MILLIGRAM/KILOGRAM
     Route: 065

REACTIONS (4)
  - Anastomotic leak [Unknown]
  - Small intestinal obstruction [Recovered/Resolved]
  - Anal abscess [Recovered/Resolved]
  - Therapy non-responder [Unknown]
